FAERS Safety Report 20645287 (Version 1)
Quarter: 2022Q1

REPORT INFORMATION
  Report Type: Spontaneous
  Country: US (occurrence: US)
  Receive Date: 20220328
  Receipt Date: 20220328
  Transmission Date: 20220423
  Serious: Yes (Other)
  Sender: FDA-Public Use
  Company Number: US-GILEAD-2022-0565805

PATIENT
  Age: 41 Year
  Sex: Female
  Weight: 87.528 kg

DRUGS (2)
  1. TRODELVY [Suspect]
     Active Substance: SACITUZUMAB GOVITECAN-HZIY
     Indication: Triple negative breast cancer
     Dosage: 7 CYCLES
     Route: 065
     Dates: start: 20201013
  2. LEVOTHYROXINE [Concomitant]
     Active Substance: LEVOTHYROXINE
     Dosage: 100 MG
     Route: 048
     Dates: start: 20200608

REACTIONS (2)
  - Chest wall resection [Unknown]
  - Rash [Recovered/Resolved]
